FAERS Safety Report 9685314 (Version 2)
Quarter: 2013Q4

REPORT INFORMATION
  Report Type: Report from Study
  Country: US (occurrence: US)
  Receive Date: 20131113
  Receipt Date: 20131115
  Transmission Date: 20140711
  Serious: Yes (Hospitalization)
  Sender: FDA-Public Use
  Company Number: US-JNJFOC-20131103440

PATIENT
  Age: 18 Year
  Sex: Male
  Weight: 79.5 kg

DRUGS (20)
  1. REMICADE [Suspect]
     Indication: CROHN^S DISEASE
     Route: 042
     Dates: start: 20080421, end: 20080919
  2. DIPHENHYDRAMINE HYDROCHLORIDE [Concomitant]
     Route: 065
  3. HUMIRA [Concomitant]
     Indication: CROHN^S DISEASE
     Route: 065
     Dates: start: 20120101
  4. HUMIRA [Concomitant]
     Indication: CROHN^S DISEASE
     Route: 065
     Dates: start: 20081119, end: 20100115
  5. CIMZIA [Concomitant]
     Indication: CROHN^S DISEASE
     Route: 065
     Dates: start: 20100609
  6. METHOTREXATE [Concomitant]
     Indication: CROHN^S DISEASE
     Route: 065
  7. CALCIUM CARBONATE AND VITAMIN D [Concomitant]
     Route: 065
  8. FLONASE [Concomitant]
     Route: 065
  9. ALBUTEROL [Concomitant]
     Route: 065
  10. BUDESONIDE [Concomitant]
     Indication: CROHN^S DISEASE
     Route: 065
  11. ZOFRAN [Concomitant]
     Route: 065
  12. OMEPRAZOLE [Concomitant]
     Route: 065
  13. PEPTOBISMOL [Concomitant]
     Route: 065
  14. FLUOXETINE [Concomitant]
     Route: 065
  15. VITRON C [Concomitant]
     Route: 065
  16. FOLIC ACID [Concomitant]
     Route: 065
  17. MULTIVITAMINS [Concomitant]
     Route: 065
  18. MOTRIN IB [Concomitant]
     Route: 065
  19. KENALOG [Concomitant]
     Route: 065
  20. TYLENOL EXTRA STRENGTH [Concomitant]
     Route: 065

REACTIONS (1)
  - Crohn^s disease [Recovered/Resolved]
